FAERS Safety Report 9548333 (Version 1)
Quarter: 2013Q3

REPORT INFORMATION
  Report Type: Spontaneous
  Country: DE (occurrence: None)
  Receive Date: 20130920
  Receipt Date: 20130920
  Transmission Date: 20140515
  Serious: Yes (Other)
  Sender: FDA-Public Use
  Company Number: GER/GER/13/0034557

PATIENT
  Age: 27 Year
  Sex: Female
  Weight: 107 kg

DRUGS (5)
  1. LAMOTRIGINE [Suspect]
     Indication: DEPRESSION
     Route: 048
     Dates: start: 20090619, end: 20100316
  2. FREVILOR (VENLAFAXINE HYDROCHLORIDE) [Suspect]
     Indication: DEPRESSION
     Route: 048
     Dates: start: 20090619, end: 20100316
  3. PROMETHAZINE [Suspect]
     Indication: OBSESSIVE-COMPULSIVE DISORDER
     Route: 048
     Dates: start: 20090616, end: 20100316
  4. LEVOTHYROXINE SODIUM (LEVOTHYROXINE SODIUM) [Concomitant]
  5. FOLIO FORTE (FOLIO) [Concomitant]

REACTIONS (3)
  - Caesarean section [None]
  - Maternal exposure during pregnancy [None]
  - Pregnancy [None]
